FAERS Safety Report 5388688-2 (Version None)
Quarter: 2007Q3

REPORT INFORMATION
  Report Type: 
  Country: None (occurrence: None)
  Receive Date: 20070712
  Receipt Date: 20070629
  Transmission Date: 20080115
  Serious: Yes (Other)
  Sender: FDA-Public Use
  Company Number: 02100-EUR-07-0094

PATIENT
  Age: 68 Year
  Sex: Female

DRUGS (1)
  1. CILOSTAZOL [Suspect]
     Indication: PERIPHERAL ARTERIAL OCCLUSIVE DISEASE
     Dosage: ORAL
     Route: 048
     Dates: start: 20070607, end: 20070613

REACTIONS (3)
  - ARRHYTHMIA [None]
  - DIZZINESS [None]
  - MALAISE [None]
